FAERS Safety Report 5956886-2 (Version None)
Quarter: 2008Q4

REPORT INFORMATION
  Report Type: 
  Country: None (occurrence: None)
  Receive Date: 20081118
  Receipt Date: 20081111
  Transmission Date: 20090506
  Serious: Yes (Other)
  Sender: FDA-Public Use
  Company Number: US-PFIZER INC-2008081096

PATIENT
  Sex: Female
  Weight: 65.8 kg

DRUGS (1)
  1. CHANTIX [Suspect]
     Indication: SMOKING CESSATION THERAPY
     Dates: start: 20081002

REACTIONS (14)
  - ABDOMINAL PAIN UPPER [None]
  - ABNORMAL DREAMS [None]
  - AGGRESSION [None]
  - AGITATION [None]
  - CONFUSIONAL STATE [None]
  - DEPRESSION [None]
  - DIZZINESS [None]
  - DRUG INEFFECTIVE [None]
  - HAEMORRHAGE [None]
  - INSOMNIA [None]
  - MEMORY IMPAIRMENT [None]
  - MENSTRUATION IRREGULAR [None]
  - NIGHTMARE [None]
  - WEIGHT INCREASED [None]
